FAERS Safety Report 7249686-7 (Version None)
Quarter: 2011Q1

REPORT INFORMATION
  Report Type: 
  Country: None (occurrence: None)
  Receive Date: 20110128
  Receipt Date: 20110118
  Transmission Date: 20110831
  Serious: Yes (Hospitalization, Disabling)
  Sender: FDA-Public Use
  Company Number: JP-JNJFOC-20100908738

PATIENT
  Age: 60 Year
  Sex: Male
  Weight: 73 kg

DRUGS (14)
  1. REMICADE [Suspect]
     Indication: PSORIATIC ARTHROPATHY
     Route: 042
  2. PREDNISOLONE [Concomitant]
     Route: 048
  3. PARIET [Concomitant]
     Indication: PROPHYLAXIS
     Route: 048
  4. REMICADE [Suspect]
     Route: 042
  5. DOVONEX [Concomitant]
     Indication: PSORIATIC ARTHROPATHY
  6. PREDNISOLONE [Concomitant]
     Indication: PSORIATIC ARTHROPATHY
     Route: 048
  7. PREDNISOLONE [Concomitant]
     Route: 048
  8. REMICADE [Suspect]
     Route: 042
  9. ANTEBATE [Concomitant]
     Indication: PSORIATIC ARTHROPATHY
  10. PREDNISOLONE [Concomitant]
     Route: 048
  11. REMICADE [Suspect]
     Route: 042
  12. ISCOTIN [Concomitant]
     Indication: ANTIBIOTIC PROPHYLAXIS
     Route: 048
  13. PREDNISOLONE [Concomitant]
     Route: 048
  14. ALLELOCK [Concomitant]
     Indication: PSORIATIC ARTHROPATHY
     Route: 048

REACTIONS (1)
  - HERPES ZOSTER [None]
